FAERS Safety Report 4438324-4 (Version None)
Quarter: 2004Q3

REPORT INFORMATION
  Report Type: 
  Country: None (occurrence: None)
  Receive Date: 20040831
  Receipt Date: 20040716
  Transmission Date: 20050211
  Serious: No
  Sender: FDA-Public Use
  Company Number: US-GLAXOSMITHKLINE-A0518630A

PATIENT
  Sex: Female

DRUGS (3)
  1. WELLBUTRIN XL [Suspect]
     Indication: DEPRESSION
     Dosage: 300MG PER DAY
     Route: 048
     Dates: start: 20030615
  2. LEXAPRO [Concomitant]
  3. PREVACID [Concomitant]

REACTIONS (4)
  - BACK PAIN [None]
  - FEELING ABNORMAL [None]
  - HEADACHE [None]
  - MYALGIA [None]
